FAERS Safety Report 5012903-8 (Version None)
Quarter: 2006Q2

REPORT INFORMATION
  Report Type: 
  Country: None (occurrence: None)
  Receive Date: 20060524
  Receipt Date: 20060520
  Transmission Date: 20061013
  Serious: Yes (Other)
  Sender: FDA-Public Use
  Company Number: 222532

PATIENT
  Sex: Male

DRUGS (2)
  1. AVASTIN [Suspect]
     Indication: RENAL CELL CARCINOMA STAGE UNSPECIFIED
  2. INTRON A [Suspect]
     Indication: RENAL CELL CARCINOMA STAGE UNSPECIFIED

REACTIONS (4)
  - GLOMERULAR VASCULAR DISORDER [None]
  - GLOMERULONEPHRITIS [None]
  - THERAPEUTIC RESPONSE DECREASED [None]
  - THROMBOTIC MICROANGIOPATHY [None]
